FAERS Safety Report 19691503 (Version 3)
Quarter: 2022Q2

REPORT INFORMATION
  Report Type: Report from Study
  Country: US (occurrence: US)
  Receive Date: 20210812
  Receipt Date: 20220513
  Transmission Date: 20220721
  Serious: Yes (Hospitalization, Other)
  Sender: FDA-Public Use
  Company Number: US-TAKEDA-2021TUS049141

PATIENT
  Sex: Female
  Weight: 90.7 kg

DRUGS (29)
  1. HUMAN IMMUNOGLOBULIN G [Suspect]
     Active Substance: HUMAN IMMUNOGLOBULIN G
     Indication: Immunodeficiency common variable
     Dosage: 30 GRAM, Q4WEEKS
     Route: 042
     Dates: start: 20210604
  2. ACETAMINOPHEN [Concomitant]
     Active Substance: ACETAMINOPHEN
  3. DIPHENHYDRAMINE [Concomitant]
     Active Substance: DIPHENHYDRAMINE
  4. LIDOCAINE [Concomitant]
     Active Substance: LIDOCAINE
  5. SODIUM CHLORIDE [Concomitant]
     Active Substance: SODIUM CHLORIDE
  6. EPINEPHRINE [Concomitant]
     Active Substance: EPINEPHRINE
  7. PERCOCET [Concomitant]
     Active Substance: ACETAMINOPHEN\OXYCODONE HYDROCHLORIDE
  8. GABAPENTIN [Concomitant]
     Active Substance: GABAPENTIN
  9. DILTIAZEM [Concomitant]
     Active Substance: DILTIAZEM
  10. PANTOPRAZOLE SODIUM [Concomitant]
     Active Substance: PANTOPRAZOLE SODIUM
  11. LEVOTHYROXINE [Concomitant]
     Active Substance: LEVOTHYROXINE
  12. MONTELUKAST SODIUM [Concomitant]
     Active Substance: MONTELUKAST SODIUM
  13. RISPERIDONE [Concomitant]
     Active Substance: RISPERIDONE
  14. TOPIRAMATE [Concomitant]
     Active Substance: TOPIRAMATE
  15. LOSARTAN POTASSIUM [Concomitant]
     Active Substance: LOSARTAN POTASSIUM
  16. GEMFIBROZIL [Concomitant]
     Active Substance: GEMFIBROZIL
  17. ROSUVASTATIN CALCIUM [Concomitant]
     Active Substance: ROSUVASTATIN CALCIUM
  18. OXYGEN [Concomitant]
     Active Substance: OXYGEN
  19. LANTUS [Concomitant]
     Active Substance: INSULIN GLARGINE
  20. HYDROXYZINE [Concomitant]
     Active Substance: HYDROXYZINE HYDROCHLORIDE
  21. PROAIR HFA [Concomitant]
     Active Substance: ALBUTEROL SULFATE
  22. PREDNISONE [Concomitant]
     Active Substance: PREDNISONE
  23. DIOVAN [Concomitant]
     Active Substance: VALSARTAN
  24. GLUCAGON [Concomitant]
     Active Substance: GLUCAGON
  25. VITAMINS [Concomitant]
     Active Substance: VITAMINS
  26. PLAVIX [Concomitant]
     Active Substance: CLOPIDOGREL BISULFATE
  27. FOSAMAX [Concomitant]
     Active Substance: ALENDRONATE SODIUM
  28. NOVOLOG [Concomitant]
     Active Substance: INSULIN ASPART
  29. FOLIC ACID [Concomitant]
     Active Substance: FOLIC ACID

REACTIONS (3)
  - Nephrolithiasis [Unknown]
  - COVID-19 [Unknown]
  - Product dose omission issue [Unknown]
